FAERS Safety Report 26119682 (Version 1)
Quarter: 2025Q4

REPORT INFORMATION
  Report Type: Spontaneous
  Country: JP (occurrence: JP)
  Receive Date: 20251204
  Receipt Date: 20251204
  Transmission Date: 20260117
  Serious: Yes (Death, Hospitalization, Other)
  Sender: CELLTRION
  Company Number: JP-JPNKAYAKU-2025JPNK052963

PATIENT

DRUGS (4)
  1. BEVACIZUMAB [Suspect]
     Active Substance: BEVACIZUMAB
     Indication: Hepatocellular carcinoma
     Dosage: START: JANUARY OF YEAR X+12; 13 COURSES
     Route: 042
  2. BEVACIZUMAB [Suspect]
     Active Substance: BEVACIZUMAB
     Dosage: JANUARY OF YEAR X+13; 13 COURSES
     Route: 042
  3. ATEZOLIZUMAB [Suspect]
     Active Substance: ATEZOLIZUMAB
     Indication: Hepatocellular carcinoma
     Dosage: START: JANUARY OF YEAR X+12; 13 COURSES
     Route: 042
  4. ATEZOLIZUMAB [Suspect]
     Active Substance: ATEZOLIZUMAB
     Dosage: JANUARY OF YEAR X+13; 13 COURSES
     Route: 042

REACTIONS (5)
  - Hepatic failure [Fatal]
  - Ischaemia [Fatal]
  - Pemphigoid [Unknown]
  - Oesophageal varices haemorrhage [Unknown]
  - Intentional product use issue [Unknown]
